FAERS Safety Report 5437170-2 (Version None)
Quarter: 2007Q3

REPORT INFORMATION
  Report Type: 
  Country: None (occurrence: None)
  Receive Date: 20070831
  Receipt Date: 20070709
  Transmission Date: 20080115
  Serious: Yes (Other)
  Sender: FDA-Public Use
  Company Number: US-PURDUE-USA_2007_0028515

PATIENT
  Sex: Male
  Weight: 91 kg

DRUGS (1)
  1. OXYCONTIN [Suspect]
     Indication: PAIN
     Dosage: 40 TABLET, BID
     Route: 048
     Dates: start: 20000901, end: 20020522

REACTIONS (8)
  - DEPRESSION [None]
  - DRUG DEPENDENCE [None]
  - DRUG TOLERANCE [None]
  - DRUG WITHDRAWAL SYNDROME [None]
  - FEELINGS OF WORTHLESSNESS [None]
  - HEPATITIS C [None]
  - MALE SEXUAL DYSFUNCTION [None]
  - OVERDOSE [None]
